FAERS Safety Report 5087705-7 (Version None)
Quarter: 2006Q3

REPORT INFORMATION
  Report Type: 
  Country: None (occurrence: None)
  Receive Date: 20060731
  Receipt Date: 20060519
  Transmission Date: 20061208
  Serious: Yes (Other)
  Sender: FDA-Public Use
  Company Number: 200612299BWH

PATIENT
  Age: 79 Year
  Sex: Male

DRUGS (2)
  1. AVELOX [Suspect]
     Indication: DYSPNOEA
     Dosage: INTRAVENOUS
     Route: 042
     Dates: start: 20060409
  2. AVELOX [Suspect]
     Indication: PNEUMONIA
     Dosage: INTRAVENOUS
     Route: 042
     Dates: start: 20060409

REACTIONS (2)
  - AGGRESSION [None]
  - HALLUCINATION [None]
